FAERS Safety Report 25189797 (Version 1)
Quarter: 2025Q2

REPORT INFORMATION
  Report Type: Spontaneous
  Country: US (occurrence: US)
  Receive Date: 20250411
  Receipt Date: 20250411
  Transmission Date: 20250717
  Serious: No
  Sender: CHATTEM
  Company Number: US-OPELLA-2025OHG010197

PATIENT
  Sex: Female

DRUGS (3)
  1. ALLEGRA [Suspect]
     Active Substance: FEXOFENADINE HYDROCHLORIDE
     Indication: Product used for unknown indication
     Route: 065
  2. HYDROXYZINE HYDROCHLORIDE [Concomitant]
     Active Substance: HYDROXYZINE HYDROCHLORIDE
     Indication: Product used for unknown indication
     Route: 065
  3. Epipen 0.3 [Concomitant]
     Indication: Product used for unknown indication
     Route: 065

REACTIONS (3)
  - Dizziness [Unknown]
  - Dyspnoea [Unknown]
  - Rash [Unknown]
